FAERS Safety Report 24939827 (Version 2)
Quarter: 2025Q1

REPORT INFORMATION
  Report Type: Spontaneous
  Country: DE (occurrence: DE)
  Receive Date: 20250207
  Receipt Date: 20250213
  Transmission Date: 20250409
  Serious: Yes (Hospitalization, Other)
  Sender: NOVO NORDISK
  Company Number: DE-NOVOPROD-1361462

PATIENT
  Age: 63 Year
  Sex: Male
  Weight: 84 kg

DRUGS (9)
  1. OZEMPIC [Suspect]
     Active Substance: SEMAGLUTIDE
     Indication: Diabetes mellitus
     Dosage: 1 MG, QW
     Dates: start: 2023
  2. METFORMIN [Concomitant]
     Active Substance: METFORMIN HYDROCHLORIDE
     Indication: Diabetes mellitus
  3. AMLODIPINE [Concomitant]
     Active Substance: AMLODIPINE BESYLATE
     Indication: Hypertension
     Dosage: 5 MG, BID
  4. EZETIMIB/ATORVASTATIN ELPEN [Concomitant]
     Indication: Hyperlipidaemia
  5. ELIQUIS [Concomitant]
     Active Substance: APIXABAN
     Indication: Atrial fibrillation
     Dosage: 50 ?G, TIW
  6. BISOPROLOL [Concomitant]
     Active Substance: BISOPROLOL
     Dosage: 5 MG, QD
  7. AMLODIPINE BESYLATE\OLMESARTAN MEDOXOMIL [Concomitant]
     Active Substance: AMLODIPINE BESYLATE\OLMESARTAN MEDOXOMIL
  8. FOSTER [Concomitant]
     Active Substance: BECLOMETHASONE\FORMOTEROL
  9. POLYETHYLENE GLYCOLS [Concomitant]
     Active Substance: POLYETHYLENE GLYCOLS
     Indication: Diverticulitis

REACTIONS (9)
  - Pancreatic carcinoma [Unknown]
  - Metastases to liver [Unknown]
  - Metastases to lung [Unknown]
  - Bile duct cancer [Unknown]
  - Cholangiocarcinoma [Unknown]
  - Diverticulitis [Unknown]
  - Hepatic steatosis [Unknown]
  - Chronic gastritis [Unknown]
  - Weight decreased [Unknown]

NARRATIVE: CASE EVENT DATE: 20250115
